FAERS Safety Report 18913202 (Version 1)
Quarter: 2021Q1

REPORT INFORMATION
  Report Type: Report from Study
  Country: CO (occurrence: CO)
  Receive Date: 20210218
  Receipt Date: 20210218
  Transmission Date: 20210420
  Serious: Yes (Other)
  Sender: FDA-Public Use
  Company Number: CO-TAKEDA-2021TUS010717

PATIENT
  Age: 54 Year
  Sex: Female
  Weight: 66 kg

DRUGS (2)
  1. ICATIBANT [Suspect]
     Active Substance: ICATIBANT ACETATE
     Indication: HEREDITARY ANGIOEDEMA
     Dosage: 30MG/3ML, EVERY 6 HOURS
     Route: 058
     Dates: start: 2016
  2. ICATIBANT [Suspect]
     Active Substance: ICATIBANT ACETATE
     Indication: HEREDITARY ANGIOEDEMA
     Dosage: 30MG/3ML, EVERY 6 HOURS
     Route: 058
     Dates: start: 2016

REACTIONS (4)
  - Cystitis [Unknown]
  - Hyperlipidaemia [Unknown]
  - Weight abnormal [Unknown]
  - Body height abnormal [Unknown]

NARRATIVE: CASE EVENT DATE: 20210211
